FAERS Safety Report 13456653 (Version 1)
Quarter: 2017Q2

REPORT INFORMATION
  Report Type: Spontaneous
  Country: US (occurrence: US)
  Receive Date: 20170418
  Receipt Date: 20170418
  Transmission Date: 20170830
  Serious: No
  Sender: FDA-Public Use
  Company Number: US-SEBELA IRELAND LIMITED-2017SEB00061

PATIENT
  Age: 6 Year
  Sex: Female

DRUGS (1)
  1. IMURAN [Suspect]
     Active Substance: AZATHIOPRINE
     Dosage: UNK
     Dates: start: 201610

REACTIONS (3)
  - Viral upper respiratory tract infection [Unknown]
  - Gastroenteritis [Unknown]
  - Ear infection [Unknown]
